FAERS Safety Report 8890012 (Version 1)
Quarter: 2012Q4

REPORT INFORMATION
  Report Type: 
  Country: CA (occurrence: CA)
  Receive Date: 20121106
  Receipt Date: 20121106
  Transmission Date: 20130627
  Serious: Yes (Hospitalization)
  Sender: FDA-Public Use
  Company Number: PHMT2007CA02326

PATIENT
  Sex: Female

DRUGS (1)
  1. SANDOSTATIN LAR [Suspect]
     Indication: ACROMEGALY
     Dosage: 30 mg, QMO
     Route: 030
     Dates: start: 20070616, end: 20071006

REACTIONS (3)
  - Pituitary tumour [Unknown]
  - Flatulence [Unknown]
  - Diarrhoea [Unknown]
